FAERS Safety Report 12605702 (Version 1)
Quarter: 2016Q3

REPORT INFORMATION
  Report Type: Spontaneous
  Country: US (occurrence: None)
  Receive Date: 20160728
  Receipt Date: 20160728
  Transmission Date: 20161109
  Serious: Yes (Hospitalization)
  Sender: FDA-Public Use
  Company Number: None

PATIENT
  Age: 49 Year
  Sex: Male
  Weight: 209 kg

DRUGS (1)
  1. VANCOMYCIN, 2 GM [Suspect]
     Active Substance: VANCOMYCIN
     Indication: CELLULITIS
     Route: 042

REACTIONS (1)
  - Renal failure [None]

NARRATIVE: CASE EVENT DATE: 20160720
